FAERS Safety Report 14649073 (Version 2)
Quarter: 2018Q2

REPORT INFORMATION
  Report Type: Report from Study
  Country: None (occurrence: US)
  Receive Date: 20180316
  Receipt Date: 20180427
  Transmission Date: 20180711
  Serious: Yes (Death, Other)
  Sender: FDA-Public Use
  Company Number: US-ABBVIE-18K-163-2289006-00

PATIENT
  Age: 68 Year
  Sex: Female

DRUGS (1)
  1. HUMIRA [Suspect]
     Active Substance: ADALIMUMAB
     Indication: RHEUMATOID ARTHRITIS
     Route: 058
     Dates: start: 20180316

REACTIONS (9)
  - Blood sodium abnormal [Unknown]
  - Aphthous ulcer [Unknown]
  - Visual impairment [Unknown]
  - Nervous system disorder [Unknown]
  - Cardio-respiratory arrest [Fatal]
  - Thrombotic thrombocytopenic purpura [Unknown]
  - Loss of consciousness [Unknown]
  - Hepatic failure [Unknown]
  - Herpes virus infection [Unknown]

NARRATIVE: CASE EVENT DATE: 2018
